FAERS Safety Report 14525024 (Version 1)
Quarter: 2018Q1

REPORT INFORMATION
  Report Type: Spontaneous
  Country: US (occurrence: US)
  Receive Date: 20180213
  Receipt Date: 20180213
  Transmission Date: 20180509
  Serious: Yes (Other)
  Sender: FDA-Public Use
  Company Number: PHEH2018US004410

PATIENT
  Sex: Female

DRUGS (1)
  1. DONEPEZIL. [Suspect]
     Active Substance: DONEPEZIL
     Dosage: 5 MG, QD
     Route: 048

REACTIONS (4)
  - Drug ineffective [Unknown]
  - Insomnia [Unknown]
  - Suicidal ideation [Unknown]
  - Crying [Unknown]
